FAERS Safety Report 5755559-9 (Version None)
Quarter: 2008Q2

REPORT INFORMATION
  Report Type: 
  Country: None (occurrence: None)
  Receive Date: 20080528
  Receipt Date: 20080514
  Transmission Date: 20081010
  Serious: Yes (Hospitalization)
  Sender: FDA-Public Use
  Company Number: MEDI-0006635

PATIENT
  Age: 5 Month
  Sex: Female
  Weight: 6 kg

DRUGS (10)
  1. SYNAGIS [Suspect]
     Dates: start: 20070907, end: 20071106
  2. SYNAGIS [Suspect]
     Dates: start: 20070907
  3. SYNAGIS [Suspect]
     Dates: start: 20071005
  4. SYNAGIS [Suspect]
     Dates: start: 20071205
  5. SYNAGIS [Suspect]
     Dates: start: 20080102
  6. INDOMETHACIN [Concomitant]
  7. ACETAMINOPHEN [Concomitant]
  8. IBUPROFEN [Concomitant]
  9. LACTOBACILLUS ACIDOPHILUS (LACTOBACILLUS ACIDOPHILUS) [Concomitant]
  10. HEDERA HELIX (HEDERA HELIX) [Concomitant]

REACTIONS (7)
  - BRONCHITIS [None]
  - ESCHERICHIA INFECTION [None]
  - GASTROENTERITIS [None]
  - PYURIA [None]
  - RESPIRATORY SYNCYTIAL VIRUS INFECTION [None]
  - URINARY TRACT INFECTION [None]
  - VESICOURETERIC REFLUX [None]
